FAERS Safety Report 4864042-4 (Version None)
Quarter: 2005Q4

REPORT INFORMATION
  Report Type: 
  Country: None (occurrence: None)
  Receive Date: 20051219
  Receipt Date: 20051219
  Transmission Date: 20060501
  Serious: Yes (Other)
  Sender: FDA-Public Use
  Company Number: None

PATIENT
  Age: 51 Year
  Sex: Male
  Weight: 83.5 kg

DRUGS (8)
  1. ZOCOR [Suspect]
     Indication: CORONARY ARTERY DISEASE
     Dosage: 20 MG QHS
     Dates: start: 20021031, end: 20051020
  2. ALBUTEROL/ATROVENT [Concomitant]
  3. BACLOFEN [Concomitant]
  4. SIMVASTATIN [Concomitant]
  5. NITROGLYCERIN [Concomitant]
  6. METOPROLOL [Concomitant]
  7. LISINOPRIL [Concomitant]
  8. ISOSORBIDE DINITRATE [Concomitant]

REACTIONS (2)
  - BACK PAIN [None]
  - BLOOD CREATINE PHOSPHOKINASE INCREASED [None]
